FAERS Safety Report 8124204-X (Version None)
Quarter: 2012Q1

REPORT INFORMATION
  Report Type: 
  Country: None (occurrence: None)
  Receive Date: 20120209
  Receipt Date: 20120131
  Transmission Date: 20120608
  Serious: Yes (Hospitalization)
  Sender: FDA-Public Use
  Company Number: JP-SANOFI-AVENTIS-2012SA007471

PATIENT
  Age: 79 Year
  Sex: Male
  Weight: 159.5 kg

DRUGS (6)
  1. MIGLITOL [Concomitant]
  2. METFORMIN HCL [Concomitant]
  3. APIDRA [Suspect]
     Dosage: DOSE:2 UNIT(S)
     Route: 065
     Dates: start: 20101215, end: 20101221
  4. APIDRA [Suspect]
     Dosage: DOSE:2 UNIT(S)
     Route: 065
     Dates: start: 20101222, end: 20110216
  5. APIDRA [Suspect]
     Dosage: DOSE:2 UNIT(S)
     Route: 065
     Dates: start: 20110216, end: 20110316
  6. LANTUS [Concomitant]
     Dosage: DOSE:9 UNIT(S)

REACTIONS (1)
  - ADVERSE EVENT [None]
